FAERS Safety Report 6761408-2 (Version None)
Quarter: 2010Q2

REPORT INFORMATION
  Report Type: 
  Country: None (occurrence: None)
  Receive Date: 20100608
  Receipt Date: 20100528
  Transmission Date: 20101027
  Serious: Yes (Other)
  Sender: FDA-Public Use
  Company Number: DE-AMGEN-US362012

PATIENT
  Sex: Female
  Weight: 72 kg

DRUGS (3)
  1. ENBREL [Suspect]
     Indication: RHEUMATOID ARTHRITIS
     Dosage: LYOPHILIZED, 25 MG TWO TIMES WEEKLY
     Route: 058
     Dates: start: 20040501
  2. ENBREL [Suspect]
     Dosage: PRE-FILLED SYRINGE, 25 MG TWO TIMES WEEKLY
     Route: 058
     Dates: end: 20090801
  3. ARAVA [Concomitant]
     Route: 048
     Dates: start: 20090101

REACTIONS (7)
  - ACTINIC KERATOSIS [None]
  - DIZZINESS POSTURAL [None]
  - DYSPLASTIC NAEVUS SYNDROME [None]
  - NAUSEA [None]
  - NECK PAIN [None]
  - PARAESTHESIA [None]
  - SPINAL MENINGIOMA BENIGN [None]
